FAERS Safety Report 12924909 (Version 1)
Quarter: 2016Q4

REPORT INFORMATION
  Report Type: Spontaneous
  Country: US (occurrence: US)
  Receive Date: 20161109
  Receipt Date: 20161109
  Transmission Date: 20170207
  Serious: No
  Sender: FDA-Public Use
  Company Number: US-ELI_LILLY_AND_COMPANY-US201611001422

PATIENT
  Age: 64 Year
  Sex: Female

DRUGS (2)
  1. CYMBALTA [Suspect]
     Active Substance: DULOXETINE HYDROCHLORIDE
     Indication: NEURALGIA
     Dosage: 60 MG, QD
     Route: 065
     Dates: start: 2007
  2. DULOXETINE HYDROCHLORIDE. [Suspect]
     Active Substance: DULOXETINE HYDROCHLORIDE
     Indication: NEURALGIA
     Dosage: 60 MG, QD
     Route: 065

REACTIONS (13)
  - Withdrawal syndrome [Unknown]
  - Mood swings [Unknown]
  - Fatigue [Recovered/Resolved]
  - Night sweats [Unknown]
  - Nightmare [Unknown]
  - Back pain [Recovered/Resolved]
  - Off label use [Unknown]
  - Vomiting [Unknown]
  - Chills [Unknown]
  - Depression [Not Recovered/Not Resolved]
  - Nausea [Unknown]
  - Arthritis [Unknown]
  - Hyperhidrosis [Unknown]

NARRATIVE: CASE EVENT DATE: 201610
